FAERS Safety Report 4397974-4 (Version None)
Quarter: 2004Q3

REPORT INFORMATION
  Report Type: 
  Country: None (occurrence: None)
  Receive Date: 20040713
  Receipt Date: 20040628
  Transmission Date: 20050211
  Serious: Yes (Hospitalization)
  Sender: FDA-Public Use
  Company Number: 170925

PATIENT
  Age: 41 Year
  Sex: Female
  Weight: 63.5036 kg

DRUGS (1)
  1. AVONEX [Suspect]
     Indication: MULTIPLE SCLEROSIS
     Dosage: 30 MCG QW IM
     Route: 030
     Dates: start: 20020201

REACTIONS (6)
  - ASCITES [None]
  - GILBERT'S SYNDROME [None]
  - HYPERBILIRUBINAEMIA [None]
  - NAUSEA [None]
  - OVARIAN CYST RUPTURED [None]
  - VOMITING [None]
